FAERS Safety Report 9787565 (Version 2)
Quarter: 2013Q4

REPORT INFORMATION
  Report Type: Spontaneous
  Country: US (occurrence: US)
  Receive Date: 20131230
  Receipt Date: 20131230
  Transmission Date: 20140711
  Serious: Yes (Other)
  Sender: FDA-Public Use
  Company Number: US-ACCORD-020977

PATIENT
  Age: 17 Year
  Sex: 0

DRUGS (3)
  1. ETOPOSIDE [Suspect]
     Indication: ACUTE LYMPHOCYTIC LEUKAEMIA
     Dosage: # PRIOR THERAPY COURSES 3
     Route: 042
  2. CLOFARABINE [Suspect]
     Indication: ACUTE LYMPHOCYTIC LEUKAEMIA
     Dosage: #PRIOR THERAPY COURSES 3
     Route: 042
  3. CYCLOPHOSPHAMIDE [Suspect]
     Indication: ACUTE LYMPHOCYTIC LEUKAEMIA
     Dosage: #PRIOR THERAPY COURSES 3
     Route: 042

REACTIONS (4)
  - Febrile neutropenia [Unknown]
  - Renal failure [Unknown]
  - Tenosynovitis [Unknown]
  - Off label use [Unknown]
